FAERS Safety Report 25412985 (Version 1)
Quarter: 2025Q2

REPORT INFORMATION
  Report Type: Spontaneous
  Country: JP (occurrence: JP)
  Receive Date: 20250609
  Receipt Date: 20250609
  Transmission Date: 20250716
  Serious: Yes (Death, Other)
  Sender: BRACCO
  Company Number: JP-BAYER-2025A073141

PATIENT
  Age: 84 Year
  Sex: Male

DRUGS (17)
  1. HEPARIN SODIUM [Suspect]
     Active Substance: HEPARIN SODIUM
     Indication: Angina pectoris
     Route: 042
     Dates: start: 20250415, end: 20250415
  2. IOPAMIRON [Suspect]
     Active Substance: IOPAMIDOL
     Indication: Angiocardiogram
     Route: 042
     Dates: start: 20250415, end: 20250415
  3. ARGATROBAN [Concomitant]
     Active Substance: ARGATROBAN
     Indication: Angina pectoris
     Dates: start: 20250415
  4. ASPIRIN [Concomitant]
     Active Substance: ASPIRIN
  5. BICALUTAMIDE [Concomitant]
     Active Substance: BICALUTAMIDE
  6. CARVEDILOL [Concomitant]
     Active Substance: CARVEDILOL
  7. CALCIUM CARBONATE\CHOLECALCIFEROL\MAGNESIUM CARBONATE [Concomitant]
     Active Substance: CALCIUM CARBONATE\CHOLECALCIFEROL\MAGNESIUM CARBONATE
  8. PRASUGREL HYDROCHLORIDE [Concomitant]
     Active Substance: PRASUGREL HYDROCHLORIDE
  9. FEBUXOSTAT [Concomitant]
     Active Substance: FEBUXOSTAT
  10. FERROUS SULFATE [Concomitant]
     Active Substance: FERROUS SULFATE
  11. FUROSEMIDE [Concomitant]
     Active Substance: FUROSEMIDE
  12. MAGNESIUM OXIDE [Concomitant]
     Active Substance: MAGNESIUM OXIDE
  13. ISOSORBIDE DINITRATE [Concomitant]
     Active Substance: ISOSORBIDE DINITRATE
     Route: 022
     Dates: end: 20250415
  14. PITAVASTATIN [Concomitant]
     Active Substance: PITAVASTATIN
  15. RABEPRAZOLE [Concomitant]
     Active Substance: RABEPRAZOLE
  16. SENNOSIDES [Concomitant]
     Active Substance: SENNOSIDES
  17. SILODOSIN [Concomitant]
     Active Substance: SILODOSIN

REACTIONS (1)
  - Anaphylactic shock [Fatal]

NARRATIVE: CASE EVENT DATE: 20250415
